FAERS Safety Report 18968935 (Version 1)
Quarter: 2021Q1

REPORT INFORMATION
  Report Type: Spontaneous
  Country: US (occurrence: US)
  Receive Date: 20210304
  Receipt Date: 20210304
  Transmission Date: 20210420
  Serious: Yes (Hospitalization)
  Sender: FDA-Public Use
  Company Number: None

PATIENT
  Sex: Female
  Weight: 67.95 kg

DRUGS (15)
  1. IMODIUM [Concomitant]
     Active Substance: LOPERAMIDE HYDROCHLORIDE
  2. LISINOPRIL. [Concomitant]
     Active Substance: LISINOPRIL
  3. ALBUTEROL. [Concomitant]
     Active Substance: ALBUTEROL
  4. MULTIVITAMIN [Concomitant]
     Active Substance: VITAMINS
  5. ENTECAVIR. [Concomitant]
     Active Substance: ENTECAVIR
  6. NIFEDIPINE. [Concomitant]
     Active Substance: NIFEDIPINE
  7. TYLENOL [Concomitant]
     Active Substance: ACETAMINOPHEN
  8. CALCIUM PLUS VITAMIN D3 [Concomitant]
  9. OXYCODONE [Concomitant]
     Active Substance: OXYCODONE
  10. ATORVASTATIN [Concomitant]
     Active Substance: ATORVASTATIN
  11. ANASTROZOLE. [Concomitant]
     Active Substance: ANASTROZOLE
  12. CARVEDILOL. [Concomitant]
     Active Substance: CARVEDILOL
  13. CAPECITABINE. [Suspect]
     Active Substance: CAPECITABINE
     Indication: BREAST CANCER
     Dates: start: 20210206
  14. LIDOCAINE. [Concomitant]
     Active Substance: LIDOCAINE
  15. METFORMIN [Concomitant]
     Active Substance: METFORMIN HYDROCHLORIDE

REACTIONS (1)
  - Hospitalisation [None]
